FAERS Safety Report 13256241 (Version 1)
Quarter: 2017Q1

REPORT INFORMATION
  Report Type: Spontaneous
  Country: US (occurrence: US)
  Receive Date: 20170220
  Receipt Date: 20170220
  Transmission Date: 20170428
  Serious: Yes (Disabling)
  Sender: FDA-Public Use
  Company Number: None

PATIENT
  Age: 68 Year
  Sex: Female
  Weight: 110.2 kg

DRUGS (6)
  1. LOVEAZA [Concomitant]
  2. MULTI VITAMIN [Concomitant]
     Active Substance: VITAMINS
  3. ELIQUIS [Suspect]
     Active Substance: APIXABAN
     Indication: ATRIAL FIBRILLATION
     Dosage: ?          QUANTITY:1 TABLET(S);?
     Route: 048
  4. CUT-B [Concomitant]
  5. CELEBREX [Concomitant]
     Active Substance: CELECOXIB
  6. TRAMODOL [Concomitant]
     Active Substance: TRAMADOL

REACTIONS (1)
  - Deafness [None]

NARRATIVE: CASE EVENT DATE: 20170216
